FAERS Safety Report 9369025 (Version 2)
Quarter: 2013Q3

REPORT INFORMATION
  Report Type: Report from Study
  Country: MX (occurrence: MX)
  Receive Date: 20130626
  Receipt Date: 20130709
  Transmission Date: 20140515
  Serious: Yes (Hospitalization)
  Sender: FDA-Public Use
  Company Number: PHHY2013MX065200

PATIENT
  Age: 90 Year
  Sex: Female

DRUGS (4)
  1. ACLASTA [Suspect]
     Indication: BONE DISORDER
     Dosage: 5 MG/100ML, YEARLY
     Route: 042
     Dates: start: 20130603
  2. CO-DIOVAN [Suspect]
     Indication: HYPERTENSION
     Dosage: 1 DF (80/12.5MG) DAILY
  3. GALVUS MET [Suspect]
     Indication: TYPE 2 DIABETES MELLITUS
     Dosage: 2 DF (850/50MG), DAILY
     Dates: start: 201301
  4. ENSURE [Concomitant]
     Dosage: UNK, Q12H
     Dates: start: 2006

REACTIONS (4)
  - Vaginitis bacterial [Recovering/Resolving]
  - Dehydration [Recovering/Resolving]
  - Renal failure acute [Recovering/Resolving]
  - Blood glucose increased [Recovered/Resolved]
